FAERS Safety Report 6749530-8 (Version None)
Quarter: 2010Q2

REPORT INFORMATION
  Report Type: 
  Country: None (occurrence: None)
  Receive Date: 20100601
  Receipt Date: 20100520
  Transmission Date: 20101027
  Serious: Yes (Other)
  Sender: FDA-Public Use
  Company Number: US-ASTRAZENECA-2010SE23095

PATIENT
  Age: 57 Year
  Sex: Female
  Weight: 78.9 kg

DRUGS (10)
  1. SEROQUEL [Suspect]
     Indication: SLEEP DISORDER
     Route: 048
     Dates: start: 20090901
  2. CELEBREX [Suspect]
     Indication: BACK PAIN
     Route: 048
  3. EFFEXOR [Suspect]
     Route: 048
     Dates: start: 20070101, end: 20070101
  4. LEXAPRO [Suspect]
     Indication: DEPRESSION
     Route: 065
     Dates: start: 20090901
  5. CYMBALTA [Suspect]
     Route: 048
     Dates: start: 20090801, end: 20090801
  6. NEURONTIN [Concomitant]
  7. GLUCOPHAGE [Concomitant]
  8. PRILOSEC [Concomitant]
  9. DICHLORALPHENAZONE/ISOMETHEPTENE MUCATE/ PARACETAMOL [Concomitant]
  10. LORCET-HD [Concomitant]

REACTIONS (9)
  - ABDOMINAL PAIN UPPER [None]
  - ANXIETY [None]
  - DRUG INEFFECTIVE [None]
  - INSOMNIA [None]
  - MENISCUS LESION [None]
  - NAUSEA [None]
  - PANIC ATTACK [None]
  - THORACIC VERTEBRAL FRACTURE [None]
  - THYROID DISORDER [None]
